FAERS Safety Report 7830782-8 (Version None)
Quarter: 2011Q4

REPORT INFORMATION
  Report Type: 
  Country: None (occurrence: None)
  Receive Date: 20111021
  Receipt Date: 20111018
  Transmission Date: 20120403
  Serious: Yes (Other)
  Sender: FDA-Public Use
  Company Number: US-GLAXOSMITHKLINE-A0936511A

PATIENT
  Age: 53 Year
  Sex: Female

DRUGS (2)
  1. ACYCLOVIR [Suspect]
     Indication: HERPES ZOSTER
     Dosage: 800MGD PER DAY
     Route: 048
  2. VALTREX [Suspect]
     Indication: HERPES ZOSTER
     Route: 048

REACTIONS (11)
  - MALAISE [None]
  - DRUG ADMINISTRATION ERROR [None]
  - THERAPEUTIC RESPONSE DECREASED [None]
  - NEUROPATHY PERIPHERAL [None]
  - TERMINAL STATE [None]
  - ILL-DEFINED DISORDER [None]
  - ACTIVITIES OF DAILY LIVING IMPAIRED [None]
  - DISABILITY [None]
  - HERPES ZOSTER [None]
  - ENCEPHALITIS [None]
  - PAIN [None]
